FAERS Safety Report 6547067-2 (Version None)
Quarter: 2010Q1

REPORT INFORMATION
  Report Type: 
  Country: None (occurrence: None)
  Receive Date: 20100122
  Receipt Date: 20100119
  Transmission Date: 20100710
  Serious: Yes (Other)
  Sender: FDA-Public Use
  Company Number: CA-JNJCH-2010001698

PATIENT
  Age: 50 Year
  Sex: Male

DRUGS (1)
  1. ROLAIDS REGULAR STRENGTH PEPPERMINT [Suspect]
     Indication: DRUG USE FOR UNKNOWN INDICATION
     Dosage: TEXT:UNSPECIFIED
     Route: 048

REACTIONS (5)
  - ABDOMINAL DISCOMFORT [None]
  - GASTRIC DISORDER [None]
  - LOSS OF EMPLOYMENT [None]
  - PRODUCT ODOUR ABNORMAL [None]
  - VOMITING [None]
